FAERS Safety Report 4388560-0 (Version None)
Quarter: 2004Q2

REPORT INFORMATION
  Report Type: 
  Country: None (occurrence: None)
  Receive Date: 20040624
  Receipt Date: 20040607
  Transmission Date: 20050107
  Serious: Yes (Death)
  Sender: FDA-Public Use
  Company Number: 237516

PATIENT
  Sex: Male

DRUGS (1)
  1. NOVOSEVEN [Suspect]
     Indication: ILL-DEFINED DISORDER

REACTIONS (2)
  - ANAPHYLACTIC REACTION [None]
  - SEPTIC SHOCK [None]
